FAERS Safety Report 13585422 (Version 1)
Quarter: 2017Q2

REPORT INFORMATION
  Report Type: Spontaneous
  Country: US (occurrence: US)
  Receive Date: 20170526
  Receipt Date: 20170526
  Transmission Date: 20170830
  Serious: No
  Sender: FDA-Public Use
  Company Number: US-GLAXOSMITHKLINE-US2017078790

PATIENT
  Age: 82 Year
  Sex: Female

DRUGS (8)
  1. AMLODIPINE [Concomitant]
     Active Substance: AMLODIPINE BESYLATE
  2. VENTOLIN HFA [Suspect]
     Active Substance: ALBUTEROL SULFATE
     Indication: PRODUCT USED FOR UNKNOWN INDICATION
     Dosage: 1 PUFF(S), PRN
     Route: 055
  3. VITAMIN D [Concomitant]
     Active Substance: CHOLECALCIFEROL
  4. IRON [Concomitant]
     Active Substance: IRON
  5. MAGNESIUM [Concomitant]
     Active Substance: MAGNESIUM
  6. POTASSIUM [Concomitant]
     Active Substance: POTASSIUM
  7. VITAMIN B12 [Concomitant]
     Active Substance: CYANOCOBALAMIN
  8. HYDROCHLOROTHIAZIDE. [Concomitant]
     Active Substance: HYDROCHLOROTHIAZIDE

REACTIONS (5)
  - Blood potassium increased [Recovered/Resolved]
  - Weight decreased [Unknown]
  - Wrong technique in device usage process [Unknown]
  - Vertigo [Recovering/Resolving]
  - Dizziness [Recovering/Resolving]

NARRATIVE: CASE EVENT DATE: 2016
